FAERS Safety Report 14241618 (Version 3)
Quarter: 2018Q2

REPORT INFORMATION
  Report Type: Spontaneous
  Country: JP (occurrence: JP)
  Receive Date: 20171201
  Receipt Date: 20180426
  Transmission Date: 20180711
  Serious: Yes (Hospitalization)
  Sender: FDA-Public Use
  Company Number: JP-ROCHE-2032043

PATIENT
  Age: 58 Year
  Sex: Female
  Weight: 50 kg

DRUGS (9)
  1. LOCHOL (JAPAN) [Concomitant]
     Route: 048
     Dates: start: 20101001
  2. CODEINE PHOSPHATE [Concomitant]
     Active Substance: CODEINE PHOSPHATE
     Route: 048
     Dates: start: 20101001
  3. BAKTAR [Concomitant]
     Active Substance: SULFAMETHOXAZOLE\TRIMETHOPRIM
     Route: 048
     Dates: start: 20101001
  4. LOXONIN [Concomitant]
     Active Substance: LOXOPROFEN SODIUM
     Dosage: DOSAGE IS UNCERTAIN.
     Route: 061
  5. PREDNISOLONE. [Concomitant]
     Active Substance: PREDNISOLONE
     Route: 048
     Dates: start: 20101001
  6. DEPAS (JAPAN) [Concomitant]
     Route: 048
     Dates: start: 20101001
  7. VOLTAREN [Concomitant]
     Active Substance: DICLOFENAC SODIUM
     Route: 048
     Dates: start: 20101001
  8. ACTEMRA [Suspect]
     Active Substance: TOCILIZUMAB
     Indication: RHEUMATOID ARTHRITIS
     Route: 041
     Dates: start: 20100416, end: 20171025
  9. ALLELOCK [Concomitant]
     Active Substance: OLOPATADINE HYDROCHLORIDE
     Route: 048
     Dates: start: 20101001

REACTIONS (4)
  - Neuralgia [Unknown]
  - Diplopia [Recovered/Resolved]
  - Rhinitis allergic [Unknown]
  - Hyperlipidaemia [Unknown]

NARRATIVE: CASE EVENT DATE: 20101001
